FAERS Safety Report 6732619-7 (Version None)
Quarter: 2010Q2

REPORT INFORMATION
  Report Type: 
  Country: None (occurrence: None)
  Receive Date: 20100517
  Receipt Date: 20030129
  Transmission Date: 20101027
  Serious: Yes (Life-Threatening)
  Sender: FDA-Public Use
  Company Number: WAES 0208USA04277

PATIENT
  Age: 64 Year
  Sex: Male

DRUGS (1)
  1. TAB FINASTERIDE [Suspect]
     Indication: PROSTATE CANCER
     Dosage: 5 MG/DAILY, PO
     Route: 048
     Dates: start: 19940701

REACTIONS (1)
  - BREAST CANCER MALE [None]
